FAERS Safety Report 21481896 (Version 1)
Quarter: 2022Q4

REPORT INFORMATION
  Report Type: Spontaneous
  Country: US (occurrence: US)
  Receive Date: 20221020
  Receipt Date: 20221020
  Transmission Date: 20230112
  Serious: Yes (Death, Hospitalization, Other)
  Sender: FDA-Public Use
  Company Number: US-AMGEN-USASP2022177641

PATIENT

DRUGS (6)
  1. BEVACIZUMAB [Suspect]
     Active Substance: BEVACIZUMAB
     Indication: Glioma
     Dosage: 10 MILLIGRAM/KG (EVERY 14 +/- 2 DAYS IN A 28-32 DAYS)
     Route: 065
  2. BEVACIZUMAB [Suspect]
     Active Substance: BEVACIZUMAB
     Indication: Glioblastoma
  3. TEMOZOLOMIDE [Suspect]
     Active Substance: TEMOZOLOMIDE
     Indication: Glioblastoma
     Dosage: 150 MILLIGRAM/M^2 (PO, QD DURING DAYS 1-5 EVERY 28 DAYS)
     Route: 065
  4. TEMOZOLOMIDE [Suspect]
     Active Substance: TEMOZOLOMIDE
     Indication: Glioma
  5. IRINOTECAN [Suspect]
     Active Substance: IRINOTECAN
     Indication: Glioma
     Dosage: 125 MILLIGRAM/M^2 (INFUSIONS EVERY 14 +/-2 DAYS IN A 28-32 DAYS)
     Route: 065
  6. IRINOTECAN [Suspect]
     Active Substance: IRINOTECAN
     Indication: Glioblastoma

REACTIONS (30)
  - Myelosuppression [Unknown]
  - Diverticular perforation [Fatal]
  - Glioma [Fatal]
  - Pneumonia aspiration [Fatal]
  - Brain oedema [Fatal]
  - Brain herniation [Fatal]
  - Renal failure [Unknown]
  - Pneumocystis jirovecii pneumonia [Unknown]
  - Seizure [Unknown]
  - Meningitis [Unknown]
  - Adverse event [Fatal]
  - Pneumonia cytomegaloviral [Unknown]
  - Intraventricular haemorrhage [Fatal]
  - Cardiomyopathy [Fatal]
  - Cerebral haemorrhage [Fatal]
  - Leukopenia [Unknown]
  - Thrombocytopenia [Unknown]
  - Neutropenia [Unknown]
  - Embolism venous [Unknown]
  - Cellulitis [Unknown]
  - Hepatic enzyme abnormal [Unknown]
  - Blood lactate dehydrogenase increased [Unknown]
  - Blood electrolytes abnormal [Unknown]
  - Herpes zoster [Unknown]
  - Weight increased [Unknown]
  - Blood creatine phosphokinase increased [Unknown]
  - Anaemia [Unknown]
  - Proteinuria [Unknown]
  - Hypertension [Unknown]
  - Weight decreased [Unknown]
